FAERS Safety Report 21950953 (Version 5)
Quarter: 2023Q1

REPORT INFORMATION
  Report Type: Report from Study
  Country: PL (occurrence: PL)
  Receive Date: 20230203
  Receipt Date: 20230323
  Transmission Date: 20230417
  Serious: Yes (Death, Hospitalization, Other)
  Sender: FDA-Public Use
  Company Number: PL-CELLTRION HEALTHCARE HUNGARY KFT-2022PL020546

PATIENT
  Age: 58 Year
  Sex: Male
  Weight: 83 kg

DRUGS (26)
  1. BENDAMUSTINE [Suspect]
     Active Substance: BENDAMUSTINE
     Indication: Chronic lymphocytic leukaemia
     Dosage: 70 MG/M2 CYCLICAL
     Route: 042
     Dates: start: 20220728, end: 20221026
  2. BENDAMUSTINE [Suspect]
     Active Substance: BENDAMUSTINE
     Dosage: 155 MG, CYCLICAL (EVERY 28 DAYS)
     Route: 042
     Dates: start: 20220729, end: 20221026
  3. BENDAMUSTINE [Suspect]
     Active Substance: BENDAMUSTINE
     Route: 042
     Dates: start: 20221025
  4. BENDAMUSTINE [Suspect]
     Active Substance: BENDAMUSTINE
     Dosage: 70MG/M2, TWO DAYS, EVERY 28 DAYS
     Route: 042
     Dates: start: 20220729
  5. BENDAMUSTINE [Suspect]
     Active Substance: BENDAMUSTINE
     Route: 042
     Dates: start: 20221026
  6. BENDAMUSTINE [Suspect]
     Active Substance: BENDAMUSTINE
     Dosage: 155 MG, CYCLIC (FREQ:28 D;CYCLICAL)
     Route: 042
     Dates: start: 20220728
  7. PIRTOBRUTINIB [Suspect]
     Active Substance: PIRTOBRUTINIB
     Indication: Chronic lymphocytic leukaemia
     Dosage: 200 MILLIGRAM, QD
     Route: 048
     Dates: start: 20221122
  8. PIRTOBRUTINIB [Suspect]
     Active Substance: PIRTOBRUTINIB
     Dosage: UNK
     Route: 048
     Dates: start: 20221219
  9. RITUXIMAB [Suspect]
     Active Substance: RITUXIMAB
     Indication: Chronic lymphocytic leukaemia
     Dosage: 1100 UNK, CYCLICAL (EVERY 28 DAYS), ON THE FIRST DAY OF EACH SUBSEQUENT CYCLE
     Route: 042
     Dates: start: 20220729, end: 20221025
  10. RITUXIMAB [Suspect]
     Active Substance: RITUXIMAB
     Dosage: 500 MG/M2, CYCLIC
     Route: 042
     Dates: end: 20221026
  11. RITUXIMAB [Suspect]
     Active Substance: RITUXIMAB
     Dosage: 1100 MG, CYCLICAL (EVERY 28 DAYS) ON THE FIRST DAY OF EACH SUBSEQUENT CYCLE
     Route: 042
  12. RITUXIMAB [Suspect]
     Active Substance: RITUXIMAB
     Dosage: 1100, CYCLICAL; FREQ: 28 DAYS
     Route: 042
     Dates: start: 20220728, end: 20221026
  13. RITUXIMAB [Suspect]
     Active Substance: RITUXIMAB
     Dosage: 818 MG, SINGLE
     Route: 042
     Dates: start: 20220729
  14. RITUXIMAB [Suspect]
     Active Substance: RITUXIMAB
     Route: 042
     Dates: start: 20221025
  15. RITUXIMAB [Suspect]
     Active Substance: RITUXIMAB
     Dosage: UNK
     Route: 042
     Dates: start: 20221026
  16. RITUXIMAB [Suspect]
     Active Substance: RITUXIMAB
     Dosage: 1100, CYCLICAL; FREQ: 28 DAYS
     Route: 042
     Dates: start: 20220728
  17. METFORMIN [Concomitant]
     Active Substance: METFORMIN HYDROCHLORIDE
     Dosage: UNK
     Dates: start: 20160229
  18. ACYCLOVIR [Concomitant]
     Active Substance: ACYCLOVIR
     Indication: Product used for unknown indication
     Dosage: UNK
     Dates: start: 2018
  19. MESALAMINE [Concomitant]
     Active Substance: MESALAMINE
     Indication: Product used for unknown indication
     Dosage: UNK
     Dates: start: 2017
  20. FOSFOMYCIN [Concomitant]
     Active Substance: FOSFOMYCIN
     Dosage: UNK
     Dates: start: 20021105
  21. GLIMEPIRIDE [Concomitant]
     Active Substance: GLIMEPIRIDE
     Indication: Product used for unknown indication
     Dosage: UNK
     Dates: start: 2020
  22. GLUCOPHAGE [Concomitant]
     Active Substance: METFORMIN HYDROCHLORIDE
     Indication: Product used for unknown indication
     Dosage: UNK
     Dates: start: 2018
  23. ALLOPURINOL [Concomitant]
     Active Substance: ALLOPURINOL
     Indication: Hyperuricaemia
     Dosage: UNK
     Dates: start: 20221123
  24. GLYBURIDE [Concomitant]
     Active Substance: GLYBURIDE
     Indication: Diabetes mellitus
  25. BISEPTOL [Concomitant]
     Active Substance: SULFAMETHOXAZOLE\TRIMETHOPRIM
     Indication: Product used for unknown indication
     Dosage: UNK
     Dates: start: 2018
  26. CILOZEK [Concomitant]
     Indication: Product used for unknown indication

REACTIONS (7)
  - Escherichia urinary tract infection [Fatal]
  - Multiple organ dysfunction syndrome [Not Recovered/Not Resolved]
  - Cardiac arrest [Not Recovered/Not Resolved]
  - Chronic lymphocytic leukaemia [Not Recovered/Not Resolved]
  - Anaemia [Recovered/Resolved]
  - COVID-19 [Not Recovered/Not Resolved]
  - Pneumonia [Fatal]

NARRATIVE: CASE EVENT DATE: 20221101
